FAERS Safety Report 5906823-1 (Version None)
Quarter: 2008Q3

REPORT INFORMATION
  Report Type: 
  Country: None (occurrence: None)
  Receive Date: 20080929
  Receipt Date: 20080915
  Transmission Date: 20090109
  Serious: Yes (Hospitalization)
  Sender: FDA-Public Use
  Company Number: 2006BI013984

PATIENT
  Age: 62 Year
  Sex: Female
  Weight: 97.5234 kg

DRUGS (11)
  1. AVONEX [Suspect]
     Indication: MULTIPLE SCLEROSIS
     Dosage: 30 UG QW IM
     Route: 030
     Dates: start: 19990901, end: 20040701
  2. AVONEX [Suspect]
     Indication: MULTIPLE SCLEROSIS
     Dosage: 30 UG QW IM
     Route: 030
     Dates: start: 20040701
  3. ASPIRIN [Concomitant]
  4. LYSINE [Concomitant]
  5. ASCORBIC ACID [Concomitant]
  6. TYLENOL (CAPLET) [Concomitant]
  7. COLACE [Concomitant]
  8. GLUCOSAMINE [Concomitant]
  9. CALCIUM [Concomitant]
  10. VITAMIN D [Concomitant]
  11. VITAMIN E [Concomitant]

REACTIONS (3)
  - ATRIAL FIBRILLATION [None]
  - NAUSEA [None]
  - VERTIGO [None]
